FAERS Safety Report 9841836 (Version 1)
Quarter: 2013Q4

REPORT INFORMATION
  Report Type: Spontaneous
  Country: US (occurrence: None)
  Receive Date: 20131219
  Receipt Date: 20131219
  Transmission Date: 20140711
  Serious: Yes (Other)
  Sender: FDA-Public Use
  Company Number: 163-20785-13020068

PATIENT
  Age: 59 Year
  Sex: Male

DRUGS (6)
  1. THALOMID [Suspect]
     Indication: PLASMA CELL MYELOMA
     Dosage: 1 IN 1 D
     Route: 048
     Dates: start: 200811
  2. REVLIMID (LENALIDOMIDE) (UNKNOWN) [Suspect]
     Indication: PLASMA CELL MYELOMA
     Dosage: 14 IN 14 D
     Dates: start: 20121212
  3. DEXAMETHASONE [Concomitant]
  4. HEPARIN [Concomitant]
  5. MULTI COMPLETE WITH IRON [Concomitant]
  6. PHOSLO [Concomitant]

REACTIONS (2)
  - Pancytopenia [None]
  - Plasma cell myeloma [None]
